FAERS Safety Report 25033800 (Version 7)
Quarter: 2025Q3

REPORT INFORMATION
  Report Type: Spontaneous
  Country: JP (occurrence: JP)
  Receive Date: 20250303
  Receipt Date: 20250904
  Transmission Date: 20251021
  Serious: Yes (Other)
  Sender: AMGEN
  Company Number: JP-AMGEN-JPNSP2025040292

PATIENT

DRUGS (4)
  1. BLINCYTO [Suspect]
     Active Substance: BLINATUMOMAB
     Indication: B precursor type acute leukaemia
     Route: 040
     Dates: start: 20250214, end: 2025
  2. PONATINIB [Concomitant]
     Active Substance: PONATINIB
  3. DASATINIB [Concomitant]
     Active Substance: DASATINIB
  4. IMATINIB [Concomitant]
     Active Substance: IMATINIB

REACTIONS (7)
  - Mental impairment [Recovered/Resolved]
  - Pyrexia [Recovered/Resolved]
  - Incorrect drug administration rate [Unknown]
  - Urinary tract infection [Recovered/Resolved]
  - Head discomfort [Unknown]
  - Cardiovascular disorder [Unknown]
  - Oedema [Unknown]

NARRATIVE: CASE EVENT DATE: 20250101
